FAERS Safety Report 5218100-5 (Version None)
Quarter: 2007Q1

REPORT INFORMATION
  Report Type: 
  Country: None (occurrence: None)
  Receive Date: 20070124
  Receipt Date: 20070122
  Transmission Date: 20070707
  Serious: Yes (Death, Hospitalization)
  Sender: FDA-Public Use
  Company Number: US-MERCK-0701USA00389

PATIENT
  Age: 50 Year
  Sex: Male

DRUGS (6)
  1. CANCIDAS [Suspect]
     Indication: FUNGAL INFECTION
     Route: 042
  2. CANCIDAS [Suspect]
     Indication: CANDIDIASIS
     Route: 042
  3. FLUCONAZOLE [Concomitant]
     Indication: FUNGAL INFECTION
     Route: 065
  4. FLUCONAZOLE [Concomitant]
     Indication: CANDIDIASIS
     Route: 065
  5. VORICONAZOLE [Concomitant]
     Indication: FUNGAL INFECTION
     Route: 065
  6. VORICONAZOLE [Concomitant]
     Indication: CANDIDIASIS
     Route: 065

REACTIONS (2)
  - DEATH [None]
  - DRUG INEFFECTIVE [None]
